FAERS Safety Report 20794033 (Version 1)
Quarter: 2022Q2

REPORT INFORMATION
  Report Type: Spontaneous
  Country: KR (occurrence: None)
  Receive Date: 20220506
  Receipt Date: 20220506
  Transmission Date: 20220720
  Serious: Yes (Other)
  Sender: FDA-Public Use
  Company Number: 2022A169920

PATIENT
  Age: 60 Year
  Sex: Female

DRUGS (2)
  1. DURVALUMAB [Suspect]
     Active Substance: DURVALUMAB
     Dosage: UNKNOWN
     Route: 042
  2. PEMBROLIZUMAB/PACLITAXEL/CARBOPLATIN [Concomitant]
     Route: 065

REACTIONS (1)
  - Malignant neoplasm progression [Unknown]

NARRATIVE: CASE EVENT DATE: 20200501
